FAERS Safety Report 4464165-8 (Version None)
Quarter: 2004Q3

REPORT INFORMATION
  Report Type: 
  Country: None (occurrence: None)
  Receive Date: 20040930
  Receipt Date: 20040930
  Transmission Date: 20050211
  Serious: Yes (Disabling)
  Sender: FDA-Public Use
  Company Number: None

PATIENT
  Sex: Female
  Weight: 74.8435 kg

DRUGS (4)
  1. TEGRETOL [Suspect]
     Indication: ANXIETY
     Dosage: SEE IMAGE
     Dates: start: 20010101, end: 20010401
  2. TEGRETOL [Suspect]
     Indication: BIPOLAR DISORDER
     Dosage: SEE IMAGE
     Dates: start: 20010101, end: 20010401
  3. RISPERDAL [Concomitant]
  4. WELLBUTRIN [Concomitant]

REACTIONS (13)
  - ABDOMINAL PAIN [None]
  - ACNE CYSTIC [None]
  - BLADDER PAIN [None]
  - BLADDER SPASM [None]
  - CYSTITIS INTERSTITIAL [None]
  - DIARRHOEA [None]
  - DYSPEPSIA [None]
  - GASTRITIS [None]
  - MEDICATION ERROR [None]
  - MICTURITION URGENCY [None]
  - NOCTURIA [None]
  - POLLAKIURIA [None]
  - URINARY INCONTINENCE [None]
